FAERS Safety Report 21886770 (Version 6)
Quarter: 2024Q3

REPORT INFORMATION
  Report Type: Spontaneous
  Country: JP (occurrence: None)
  Receive Date: 20230119
  Receipt Date: 20240729
  Transmission Date: 20241016
  Serious: Yes (Death, Life-Threatening, Hospitalization)
  Sender: ASTRAZENECA
  Company Number: 2023A009504

PATIENT
  Age: 61 Year
  Sex: Male
  Weight: 67 kg

DRUGS (22)
  1. TAGRISSO [Suspect]
     Active Substance: OSIMERTINIB
     Indication: Non-small cell lung cancer
     Route: 048
     Dates: start: 20220318, end: 20220328
  2. TAGRISSO [Suspect]
     Active Substance: OSIMERTINIB
     Indication: Lung adenocarcinoma stage IV
     Route: 048
     Dates: start: 20220318, end: 20220328
  3. TAGRISSO [Suspect]
     Active Substance: OSIMERTINIB
     Indication: Non-small cell lung cancer
     Route: 048
     Dates: start: 202309
  4. TAGRISSO [Suspect]
     Active Substance: OSIMERTINIB
     Indication: Lung adenocarcinoma stage IV
     Route: 048
     Dates: start: 202309
  5. NEXIUM [Suspect]
     Active Substance: ESOMEPRAZOLE MAGNESIUM
     Indication: Gastrooesophageal reflux disease
     Route: 048
     Dates: start: 20220301, end: 20220406
  6. IRESSA [Suspect]
     Active Substance: GEFITINIB
     Indication: Lung adenocarcinoma stage IV
     Dates: start: 20220407
  7. CARBOPLATIN [Suspect]
     Active Substance: CARBOPLATIN
     Indication: Gastrooesophageal reflux disease
     Dosage: AUC 5, 505 MG - 500 MG
     Route: 048
     Dates: start: 20230131, end: 20230328
  8. CARBOPLATIN [Suspect]
     Active Substance: CARBOPLATIN
     Indication: Gastrooesophageal reflux disease
     Dosage: AUC 5, 505 MG - 500 MG
     Route: 048
     Dates: start: 20230418, end: 20230418
  9. CARBOPLATIN [Suspect]
     Active Substance: CARBOPLATIN
     Indication: Gastrooesophageal reflux disease
     Dosage: AUC 5, 489 MG - 480 MG
     Route: 048
     Dates: start: 20230516
  10. PACLITAXEL [Suspect]
     Active Substance: PACLITAXEL
     Indication: Gastrooesophageal reflux disease
     Dosage: 100 MG/M2, 175 MG - 170 MG
     Route: 048
     Dates: start: 20230131, end: 20230328
  11. PACLITAXEL [Suspect]
     Active Substance: PACLITAXEL
     Indication: Gastrooesophageal reflux disease
     Dosage: 100 MG/M2, 175 MG - 170 MG
     Route: 048
     Dates: start: 20230418, end: 20230418
  12. PACLITAXEL [Suspect]
     Active Substance: PACLITAXEL
     Indication: Gastrooesophageal reflux disease
     Dosage: 75 MG/M2, 130.3 MG - 130 MG
     Route: 048
     Dates: start: 20230516
  13. VALSARTAN [Concomitant]
     Active Substance: VALSARTAN
     Indication: Hypertension
     Route: 048
  14. AMLODIPINE [Concomitant]
     Active Substance: AMLODIPINE BESYLATE
     Indication: Hypertension
     Route: 048
  15. LOXOPROFEN [Concomitant]
     Active Substance: LOXOPROFEN
     Indication: Non-small cell lung cancer
     Route: 048
     Dates: start: 20220301, end: 20220406
  16. NOVAMIN [Concomitant]
     Route: 048
     Dates: start: 20220301, end: 20220322
  17. CALCIUM CARBONATE\CHOLECALCIFEROL\MAGNESIUM CARBONATE [Concomitant]
     Active Substance: CALCIUM CARBONATE\CHOLECALCIFEROL\MAGNESIUM CARBONATE
     Route: 048
     Dates: start: 20220315, end: 20220406
  18. SYMPROIC [Concomitant]
     Active Substance: NALDEMEDINE
     Route: 048
     Dates: start: 20220315, end: 202206
  19. MAGNESIUM OXIDE [Concomitant]
     Active Substance: MAGNESIUM OXIDE
     Route: 048
     Dates: start: 20220315, end: 202206
  20. OXYCODONE [Concomitant]
     Active Substance: OXYCODONE
     Route: 048
     Dates: start: 20220315, end: 202206
  21. DENOSUMAB [Concomitant]
     Active Substance: DENOSUMAB
     Route: 058
     Dates: start: 20220315, end: 20220415
  22. DENOSUMAB [Concomitant]
     Active Substance: DENOSUMAB
     Route: 058
     Dates: start: 20220616

REACTIONS (9)
  - Coagulation factor deficiency [Recovering/Resolving]
  - Pericarditis malignant [Recovering/Resolving]
  - Cardiac tamponade [Recovering/Resolving]
  - Paronychia [Recovering/Resolving]
  - Tinea pedis [Recovering/Resolving]
  - Hepatic function abnormal [Fatal]
  - Diverticulum intestinal haemorrhagic [Recovered/Resolved]
  - Iron deficiency anaemia [Unknown]
  - Granulocytopenia [Not Recovered/Not Resolved]

NARRATIVE: CASE EVENT DATE: 20220325
